FAERS Safety Report 7887440-3 (Version None)
Quarter: 2011Q4

REPORT INFORMATION
  Report Type: 
  Country: None (occurrence: None)
  Receive Date: 20111102
  Receipt Date: 20110719
  Transmission Date: 20120403
  Serious: No
  Sender: FDA-Public Use
  Company Number: US-AMGEN-USASP2011036726

PATIENT
  Sex: Female

DRUGS (2)
  1. ENBREL [Suspect]
     Indication: RHEUMATOID ARTHRITIS
     Dosage: 50 MG, QWK
     Dates: start: 20101207
  2. METHOTREXATE [Concomitant]
     Dosage: 9 MG, QWK
     Dates: start: 20100101

REACTIONS (3)
  - THERAPEUTIC RESPONSE DECREASED [None]
  - LIMB DISCOMFORT [None]
  - ARTHRALGIA [None]
